FAERS Safety Report 9381972 (Version 1)
Quarter: 2013Q3

REPORT INFORMATION
  Report Type: Spontaneous
  Country: US (occurrence: US)
  Receive Date: 20130703
  Receipt Date: 20130703
  Transmission Date: 20140515
  Serious: Yes (Other)
  Sender: FDA-Public Use
  Company Number: US-TEVA-407733USA

PATIENT
  Age: 18 Year
  Sex: Female
  Weight: 71.73 kg

DRUGS (1)
  1. PARAGARD 380A [Suspect]
     Indication: CONTRACEPTION
     Route: 015
     Dates: start: 20130426, end: 20130522

REACTIONS (5)
  - Endometritis [Unknown]
  - Device expulsion [Unknown]
  - Metrorrhagia [Unknown]
  - Pain [Unknown]
  - Tenderness [Unknown]
